FAERS Safety Report 5096186-9 (Version None)
Quarter: 2006Q3

REPORT INFORMATION
  Report Type: 
  Country: None (occurrence: None)
  Receive Date: 20060905
  Receipt Date: 20060829
  Transmission Date: 20061208
  Serious: Yes (Other)
  Sender: FDA-Public Use
  Company Number: CA-BRISTOL-MYERS SQUIBB COMPANY-13494372

PATIENT
  Age: 48 Year
  Sex: Male

DRUGS (10)
  1. REYATAZ [Suspect]
     Indication: HIV INFECTION
     Dates: start: 20060617, end: 20060818
  2. FLONASE [Concomitant]
     Dates: start: 19960301
  3. LIPIDIL [Concomitant]
     Dates: start: 20010921
  4. DIDANOSINE [Concomitant]
     Dates: start: 20021004, end: 20060818
  5. ADVAIR DISKUS 100/50 [Concomitant]
     Dates: start: 20040301
  6. LAMIVUDINE [Concomitant]
     Dates: start: 20041018, end: 20060818
  7. NIFEDIPINE [Concomitant]
     Dates: start: 20050720
  8. RAMIPRIL [Concomitant]
     Dates: start: 20050720
  9. VENTOLIN [Concomitant]
  10. NORVIR [Concomitant]
     Dates: start: 20060617, end: 20060818

REACTIONS (4)
  - DYSKINESIA [None]
  - THINKING ABNORMAL [None]
  - TREMOR [None]
  - VISUAL DISTURBANCE [None]
